FAERS Safety Report 18783053 (Version 1)
Quarter: 2021Q1

REPORT INFORMATION
  Report Type: Report from Study
  Country: CL (occurrence: CL)
  Receive Date: 20210125
  Receipt Date: 20210125
  Transmission Date: 20210419
  Serious: Yes (Other)
  Sender: FDA-Public Use
  Company Number: CL-JNJFOC-20210135542

PATIENT
  Age: 18 Year
  Sex: Male

DRUGS (1)
  1. STELARA [Suspect]
     Active Substance: USTEKINUMAB
     Indication: CROHN^S DISEASE
     Dosage: 2 VIALS
     Route: 058
     Dates: start: 20200904

REACTIONS (1)
  - Anal abscess [Unknown]

NARRATIVE: CASE EVENT DATE: 202011
